FAERS Safety Report 8831248 (Version 1)
Quarter: 2012Q4

REPORT INFORMATION
  Report Type: 
  Country: US (occurrence: US)
  Receive Date: 20121008
  Receipt Date: 20121008
  Transmission Date: 20130627
  Serious: Yes (Other)
  Sender: FDA-Public Use
  Company Number: US-ASTRAZENECA-2012SE76281

PATIENT
  Age: 57 Year
  Sex: Female

DRUGS (2)
  1. VIMOVO [Suspect]
     Indication: BACK PAIN
     Dosage: 500MG/20MG, 1 TABLET BY MOUTH TWICE A DAY
     Route: 048
  2. VIMOVO [Suspect]
     Indication: INFLAMMATION
     Dosage: 500MG/20MG, 1 TABLET BY MOUTH TWICE A DAY
     Route: 048

REACTIONS (2)
  - Breast cancer [Recovering/Resolving]
  - Off label use [Unknown]
